FAERS Safety Report 20764580 (Version 1)
Quarter: 2022Q2

REPORT INFORMATION
  Report Type: Spontaneous
  Country: CN (occurrence: CN)
  Receive Date: 20220428
  Receipt Date: 20220428
  Transmission Date: 20220721
  Serious: Yes (Other)
  Sender: FDA-Public Use
  Company Number: CN-PFIZER INC-202200624927

PATIENT
  Age: 5 Year
  Sex: Male
  Weight: 17 kg

DRUGS (8)
  1. METHOTREXATE [Suspect]
     Active Substance: METHOTREXATE
     Indication: Neoplasm malignant
     Dosage: 0.65 G, 1X/DAY
     Route: 041
     Dates: start: 20220329, end: 20220402
  2. CYTARABINE [Suspect]
     Active Substance: CYTARABINE
     Indication: Neoplasm malignant
     Dosage: 0.2 G D4-5
     Route: 041
     Dates: start: 20220329, end: 20220402
  3. IFOSFAMIDE [Suspect]
     Active Substance: IFOSFAMIDE
     Indication: Neoplasm malignant
     Dosage: 0.55 G, 1X/DAY
     Route: 041
     Dates: start: 20220329, end: 20220402
  4. CYCLOPHOSPHAMIDE [Suspect]
     Active Substance: CYCLOPHOSPHAMIDE
     Indication: Neoplasm malignant
     Dosage: 138 MG, 1X/DAY
     Route: 041
     Dates: start: 20220329, end: 20220402
  5. ETOPOSIDE [Suspect]
     Active Substance: ETOPOSIDE
     Indication: Neoplasm malignant
     Dosage: 0.069 G D4-5
     Route: 041
     Dates: start: 20220329, end: 20220402
  6. DEXAMETHASONE [Suspect]
     Active Substance: DEXAMETHASONE
     Indication: Neoplasm malignant
     Dosage: 3.45 MG D1-D2
     Route: 041
     Dates: start: 20220329
  7. DEXAMETHASONE [Suspect]
     Active Substance: DEXAMETHASONE
     Dosage: 6.9 MG D3-D5 (PRETREATMENT) AND D1-D4 (COURSE A)
     Route: 041
     Dates: start: 20220329
  8. VINCRISTINE SULFATE [Suspect]
     Active Substance: VINCRISTINE SULFATE
     Indication: Neoplasm malignant
     Dosage: 1 MG
     Route: 041
     Dates: start: 20220329, end: 20220402

REACTIONS (1)
  - Hepatic failure [Recovering/Resolving]

NARRATIVE: CASE EVENT DATE: 20220413
